FAERS Safety Report 25242355 (Version 1)
Quarter: 2025Q2

REPORT INFORMATION
  Report Type: Spontaneous
  Country: ES (occurrence: ES)
  Receive Date: 20250427
  Receipt Date: 20250427
  Transmission Date: 20250717
  Serious: Yes (Other)
  Sender: AUROBINDO
  Company Number: ES-AMAROX PHARMA GMBH-AMR2022ES00042

PATIENT
  Age: 4 Year
  Sex: Male

DRUGS (6)
  1. ATENOLOL [Suspect]
     Active Substance: ATENOLOL
     Indication: Hypertension
     Route: 065
  2. AMLODIPINE [Suspect]
     Active Substance: AMLODIPINE BESYLATE
     Indication: Hypertension
     Route: 065
  3. SPIRONOLACTONE [Concomitant]
     Active Substance: SPIRONOLACTONE
     Indication: Hypertension
     Route: 065
  4. DOXAZOSIN [Concomitant]
     Active Substance: DOXAZOSIN MESYLATE
     Indication: Hypertension
     Route: 065
  5. HYDRALAZINE [Concomitant]
     Active Substance: HYDRALAZINE HYDROCHLORIDE
     Indication: Hypertension
     Route: 065
  6. HYDROCHLOROTHIAZIDE [Concomitant]
     Active Substance: HYDROCHLOROTHIAZIDE
     Indication: Hypertension
     Route: 065

REACTIONS (1)
  - Product use issue [Unknown]
